FAERS Safety Report 15882825 (Version 1)
Quarter: 2019Q1

REPORT INFORMATION
  Report Type: Spontaneous
  Country: CN (occurrence: CN)
  Receive Date: 20190129
  Receipt Date: 20190129
  Transmission Date: 20190417
  Serious: Yes (Hospitalization, Other)
  Sender: FDA-Public Use
  Company Number: CN-ROCHE-2246931

PATIENT
  Age: 42 Year
  Sex: Female

DRUGS (11)
  1. CELLCEPT [Suspect]
     Active Substance: MYCOPHENOLATE MOFETIL\MYCOPHENOLATE MOFETIL HYDROCHLORIDE
     Indication: IMMUNOSUPPRESSION
     Route: 065
  2. METHYLPREDNISOLONE. [Concomitant]
     Active Substance: METHYLPREDNISOLONE
     Indication: IMMUNOSUPPRESSANT DRUG THERAPY
     Dosage: FOR 3 DAYS
     Route: 065
     Dates: start: 20160918, end: 20160920
  3. TACROLIMUS. [Concomitant]
     Active Substance: TACROLIMUS
     Dosage: 3.5MG IN THE MORNING, 3MG IN THE EVENING
     Route: 065
     Dates: start: 20161224, end: 20161227
  4. TACROLIMUS. [Concomitant]
     Active Substance: TACROLIMUS
     Route: 065
  5. BIAPENEM [Concomitant]
     Active Substance: BIAPENEM
  6. MIZORIBINE [Concomitant]
     Active Substance: MIZORIBINE
     Indication: IMMUNOSUPPRESSION
     Route: 065
     Dates: start: 20161224, end: 20161227
  7. METHYLPREDNISOLONE. [Concomitant]
     Active Substance: METHYLPREDNISOLONE
     Route: 065
     Dates: start: 20161224
  8. MOXIFLOXACIN. [Concomitant]
     Active Substance: MOXIFLOXACIN
     Dosage: FOR DAY AND NIGHT
     Route: 065
  9. METHYLPREDNISOLONE. [Concomitant]
     Active Substance: METHYLPREDNISOLONE
     Route: 065
  10. BASILIXIMAB [Concomitant]
     Active Substance: BASILIXIMAB
     Dosage: FOR 2 TIMES
     Route: 065
  11. HUMAN IMMUNOGLOBULIN [Concomitant]
     Active Substance: HUMAN IMMUNOGLOBULIN G
     Route: 042
     Dates: start: 20160921

REACTIONS (16)
  - Kidney transplant rejection [Unknown]
  - Pleural effusion [Unknown]
  - Pyrexia [Unknown]
  - Leukopenia [Unknown]
  - Haemoglobin decreased [Unknown]
  - Blood potassium decreased [Unknown]
  - Haemangioma [Unknown]
  - Thrombocytopenia [Unknown]
  - Alkalosis [Unknown]
  - Blood lactate dehydrogenase increased [Unknown]
  - Pelvic venous thrombosis [Unknown]
  - Atelectasis [Unknown]
  - Transaminases increased [Unknown]
  - Haemangioma of liver [Unknown]
  - Pneumonitis [Unknown]
  - C-reactive protein increased [Unknown]

NARRATIVE: CASE EVENT DATE: 20161201
